FAERS Safety Report 15330866 (Version 1)
Quarter: 2018Q3

REPORT INFORMATION
  Report Type: Report from Study
  Country: US (occurrence: US)
  Receive Date: 20180829
  Receipt Date: 20180829
  Transmission Date: 20181010
  Serious: Yes (Other)
  Sender: FDA-Public Use
  Company Number: PHHY2018US084136

PATIENT
  Sex: Female

DRUGS (1)
  1. ENTRESTO [Suspect]
     Active Substance: SACUBITRIL\VALSARTAN
     Indication: PRODUCT USED FOR UNKNOWN INDICATION
     Route: 065

REACTIONS (6)
  - Rash [Unknown]
  - Urinary tract infection [Recovered/Resolved]
  - Herpes zoster [Unknown]
  - Kidney infection [Recovered/Resolved]
  - Diverticulitis [Recovered/Resolved]
  - Muscle spasms [Unknown]
